FAERS Safety Report 16155319 (Version 2)
Quarter: 2019Q2

REPORT INFORMATION
  Report Type: Spontaneous
  Country: HR (occurrence: HR)
  Receive Date: 20190403
  Receipt Date: 20190405
  Transmission Date: 20190711
  Serious: Yes (Other)
  Sender: FDA-Public Use
  Company Number: HR-AMGEN-HRVSP2019049250

PATIENT
  Age: 44 Year
  Sex: Female

DRUGS (14)
  1. DEPAKINE CHRONO [Concomitant]
     Active Substance: VALPROATE SODIUM
     Dosage: 3X300 MILLIGRAM
  2. PARSABIV [Suspect]
     Active Substance: ETELCALCETIDE HYDROCHLORIDE
     Indication: HYPERPARATHYROIDISM SECONDARY
     Dosage: 5 MILLIGRAM, 3 TIMES/WK
     Dates: start: 201805
  3. NEPRO HP [Concomitant]
     Dosage: 2X1 DOSE
  4. MIMPARA [Suspect]
     Active Substance: CINACALCET HYDROCHLORIDE
     Indication: PRODUCT USED FOR UNKNOWN INDICATION
     Dosage: 30 MILLIGRAM, QD
     Route: 065
     Dates: end: 20180514
  5. RISET [Concomitant]
     Dosage: 2 MILLIGRAM, IN THE EVENING
  6. TEGRETOL [Concomitant]
     Active Substance: CARBAMAZEPINE
     Dosage: 2X200 MILLIGRAM
  7. ZEMPLAR [Concomitant]
     Active Substance: PARICALCITOL
     Dosage: 10MUG
  8. CONTROLOC [Concomitant]
     Active Substance: PANTOPRAZOLE SODIUM
     Dosage: 40 MILLIGRAM, FIRST IN THE MORNING
  9. SORBISTERIT [Concomitant]
     Dosage: AS NEEDED
  10. CONCOR [Concomitant]
     Active Substance: BISOPROLOL FUMARATE
     Dosage: 2.5 MILLIGRAM, IN THE MORNING
  11. OSVAREN [Concomitant]
     Active Substance: CALCIUM ACETATE\MAGNESIUM CARBONATE
     Dosage: 1,2,1,
  12. FOLACIN [FOLIC ACID] [Concomitant]
     Active Substance: FOLIC ACID
     Dosage: 5 MILLIGRAM, SDD
  13. NORMABEL [Concomitant]
     Active Substance: DIAZEPAM
     Dosage: 3X100 MILLIGRAM
  14. PLICET [Concomitant]
     Dosage: 500 MILLIGRAM, AS NEEDED

REACTIONS (1)
  - Epilepsy [Unknown]

NARRATIVE: CASE EVENT DATE: 201811
